FAERS Safety Report 8414698-4 (Version None)
Quarter: 2012Q2

REPORT INFORMATION
  Report Type: 
  Country: None (occurrence: None)
  Receive Date: 20120605
  Receipt Date: 20120516
  Transmission Date: 20120825
  Serious: Yes (Hospitalization, Disabling, Other)
  Sender: FDA-Public Use
  Company Number: US-MERCK-1203USA03395

PATIENT
  Age: 42 Year
  Sex: Female

DRUGS (4)
  1. FOSAMAX [Suspect]
     Indication: OSTEOPOROSIS
     Route: 048
     Dates: start: 20000101, end: 20081001
  2. FOSAMAX [Suspect]
     Indication: OSTEOPENIA
     Route: 048
     Dates: start: 20000101, end: 20081001
  3. FOSAMAX [Suspect]
     Route: 048
     Dates: start: 20080301, end: 20100601
  4. FOSAMAX [Suspect]
     Indication: PROPHYLAXIS
     Route: 048
     Dates: start: 20080301, end: 20100601

REACTIONS (40)
  - CHOLELITHIASIS [None]
  - HYPERTENSION [None]
  - FATIGUE [None]
  - TOOTH DISORDER [None]
  - HYPERTONIC BLADDER [None]
  - CARDIAC FAILURE [None]
  - CATARACT [None]
  - OSTEOPOROSIS [None]
  - PELVI-URETERIC OBSTRUCTION [None]
  - STRESS FRACTURE [None]
  - ASPARTATE AMINOTRANSFERASE INCREASED [None]
  - OSTEOARTHRITIS [None]
  - TYPE 2 DIABETES MELLITUS [None]
  - FRACTURE NONUNION [None]
  - BLOOD CHOLESTEROL INCREASED [None]
  - CALCULUS URINARY [None]
  - ANAEMIA POSTOPERATIVE [None]
  - FRACTURE [None]
  - ASTIGMATISM [None]
  - HYDRONEPHROSIS [None]
  - VITAMIN D DEFICIENCY [None]
  - RIB FRACTURE [None]
  - DEEP VEIN THROMBOSIS [None]
  - APPENDIX DISORDER [None]
  - METABOLIC SYNDROME [None]
  - FALL [None]
  - URINARY INCONTINENCE [None]
  - RED BLOOD CELL SEDIMENTATION RATE INCREASED [None]
  - CHOLECYSTITIS ACUTE [None]
  - ELECTROCARDIOGRAM ABNORMAL [None]
  - HYPOKALAEMIA [None]
  - HAEMATURIA [None]
  - ORAL DISORDER [None]
  - NEPHROLITHIASIS [None]
  - FEMUR FRACTURE [None]
  - LOW TURNOVER OSTEOPATHY [None]
  - PANCREATITIS [None]
  - HYPOTHYROIDISM [None]
  - CARDIAC MONITORING ABNORMAL [None]
  - CHEST PAIN [None]
